FAERS Safety Report 8785818 (Version 1)
Quarter: 2012Q4

REPORT INFORMATION
  Report Type: Spontaneous
  Country: GB (occurrence: None)
  Receive Date: 20120905
  Receipt Date: 20120905
  Transmission Date: 20130627
  Serious: Yes (Hospitalization, Disabling)
  Sender: FDA-Public Use
  Company Number: DSA_59109_2012

PATIENT

DRUGS (2)
  1. METRONIDAZOLE [Suspect]
     Indication: TOOTH DISORDER
  2. TRIMOVATE [Suspect]

REACTIONS (6)
  - Visual impairment [None]
  - Tinnitus [None]
  - Anxiety [None]
  - Paranoia [None]
  - Feeling abnormal [None]
  - Hallucination [None]
